FAERS Safety Report 10461832 (Version 2)
Quarter: 2014Q3

REPORT INFORMATION
  Report Type: Spontaneous
  Country: JP (occurrence: JP)
  Receive Date: 20140918
  Receipt Date: 20140930
  Transmission Date: 20150326
  Serious: Yes (Hospitalization, Other)
  Sender: FDA-Public Use
  Company Number: JP-NOVOPROD-422418

PATIENT
  Age: 56 Year
  Sex: Male
  Weight: 56 kg

DRUGS (10)
  1. FENTANYL. [Concomitant]
     Active Substance: FENTANYL
     Indication: ANAESTHESIA
     Dosage: UNK
  2. NOVOSEVEN [Suspect]
     Active Substance: COAGULATION FACTOR VIIA RECOMBINANT HUMAN
     Indication: HAEMOSTASIS
     Dosage: 9.6 MG BEFORE ANAESTHESIA INDUCTION AND REPEAT EVERY 2 HOURS UNTIL POD 2
     Route: 065
  3. NOVOSEVEN [Suspect]
     Active Substance: COAGULATION FACTOR VIIA RECOMBINANT HUMAN
     Dosage: 400 U/H (CONTINUOUS INFUSION)
     Route: 042
  4. NOVOSEVEN [Suspect]
     Active Substance: COAGULATION FACTOR VIIA RECOMBINANT HUMAN
     Dosage: DOSE WAS REPEATEDLY GIVEN IN DECREMENTAL STEPS UNTIL POD 5.
     Route: 065
  5. NOVOSEVEN [Suspect]
     Active Substance: COAGULATION FACTOR VIIA RECOMBINANT HUMAN
     Dosage: 8000 U, QD( BOLUS DOSE BEFORE ANAESTHESIA INDUCTION)
     Route: 042
  6. CROSS EIGHT M [Suspect]
     Active Substance: ANTIHEMOPHILIC FACTOR HUMAN
     Indication: PRODUCT USED FOR UNKNOWN INDICATION
     Route: 065
  7. FACTOR VIII RECOMBINANT [Concomitant]
     Indication: HAEMOSTASIS
     Dosage: UNK
     Route: 065
  8. THIAMYLAL [Concomitant]
     Active Substance: THIAMYLAL
     Indication: ANAESTHESIA
     Dosage: UNK
  9. VECURONIUM [Concomitant]
     Active Substance: VECURONIUM BROMIDE
     Indication: ANAESTHESIA
     Dosage: UNK
  10. SEVOFLURANE. [Concomitant]
     Active Substance: SEVOFLURANE
     Indication: ANAESTHESIA
     Dosage: UNK

REACTIONS (1)
  - Coagulopathy [Recovered/Resolved]
